FAERS Safety Report 9174417 (Version 1)
Quarter: 2013Q1

REPORT INFORMATION
  Report Type: Spontaneous
  Country: US (occurrence: US)
  Receive Date: 20130320
  Receipt Date: 20130320
  Transmission Date: 20140127
  Serious: No
  Sender: FDA-Public Use
  Company Number: US-MYLANLABS-2012S1004063

PATIENT
  Sex: Female

DRUGS (2)
  1. ESTRADIOL TRANSDERMAL SYSTEM, USP [Suspect]
     Indication: HORMONE REPLACEMENT THERAPY
     Dosage: CHANGES Q.W.
     Dates: start: 201112, end: 201202
  2. VITAMINS [Concomitant]

REACTIONS (5)
  - Drug ineffective [Unknown]
  - Mood altered [Unknown]
  - Depressed mood [Unknown]
  - Application site erythema [Unknown]
  - Application site rash [Unknown]
